FAERS Safety Report 10684530 (Version 1)
Quarter: 2014Q4

REPORT INFORMATION
  Report Type: Spontaneous
  Country: US (occurrence: None)
  Receive Date: 20141229
  Receipt Date: 20141229
  Transmission Date: 20150529
  Serious: Yes (Hospitalization)
  Sender: FDA-Public Use
  Company Number: 2014-US-016673

PATIENT
  Age: 62 Year
  Sex: Female
  Weight: 86.2 kg

DRUGS (13)
  1. ADDERALL [Concomitant]
     Active Substance: AMPHETAMINE ASPARTATE\AMPHETAMINE SULFATE\DEXTROAMPHETAMINE SACCHARATE\DEXTROAMPHETAMINE SULFATE
  2. XYREM [Suspect]
     Active Substance: SODIUM OXYBATE
     Indication: NARCOLEPSY
     Route: 048
     Dates: start: 201404, end: 2014
  3. ANASTROZOLE. [Concomitant]
     Active Substance: ANASTROZOLE
  4. ASPIRIN (ACETYLSALICYLIC ACID) [Concomitant]
     Active Substance: ASPIRIN
  5. CALCIUM (CALCIUM CARBONATE) [Concomitant]
  6. VITAMIN D (ERGOCALCIFEROL) [Concomitant]
     Active Substance: ERGOCALCIFEROL
  7. PROLIA [Concomitant]
     Active Substance: DENOSUMAB
  8. AMLODIPINE (AMLODIPINE MESILATE) [Concomitant]
  9. BUPROPION (BUPROPION HYDROCHLORIDE) [Concomitant]
  10. LOSARTAN (LOSARTAN POTASSIUM) [Concomitant]
  11. OMEPRAZOLE. [Concomitant]
     Active Substance: OMEPRAZOLE
  12. ATORVASTATIN [Concomitant]
     Active Substance: ATORVASTATIN
  13. CLONAZEPAM. [Concomitant]
     Active Substance: CLONAZEPAM

REACTIONS (4)
  - Breast reconstruction [None]
  - Mastectomy [None]
  - Nocturia [None]
  - Discomfort [None]

NARRATIVE: CASE EVENT DATE: 201406
